FAERS Safety Report 11664643 (Version 1)
Quarter: 2015Q4

REPORT INFORMATION
  Report Type: Spontaneous
  Country: US (occurrence: None)
  Receive Date: 20151026
  Receipt Date: 20151026
  Transmission Date: 20160304
  Serious: Yes (Other)
  Sender: FDA-Public Use
  Company Number: None

PATIENT
  Age: 63 Year
  Sex: Male
  Weight: 99.79 kg

DRUGS (16)
  1. RANITIDINE [Concomitant]
     Active Substance: RANITIDINE\RANITIDINE HYDROCHLORIDE
  2. TRIPROLIDINE [Concomitant]
     Active Substance: TRIPROLIDINE
  3. BUSPIRONE [Concomitant]
     Active Substance: BUSPIRONE HYDROCHLORIDE
  4. BUDESONIDE/FORMOTEROL [Concomitant]
     Active Substance: BUDESONIDE\FORMOTEROL
  5. METOPROLOL [Concomitant]
     Active Substance: METOPROLOL
  6. TIOTROPIUM [Concomitant]
     Active Substance: TIOTROPIUM
  7. PSUDOEPHED [Concomitant]
  8. PRAVASTATIN 10MG [Suspect]
     Active Substance: PRAVASTATIN\PRAVASTATIN SODIUM
     Indication: HYPERLIPIDAEMIA
     Dosage: 1/2 TAB
     Route: 048
     Dates: start: 20140703, end: 20150812
  9. RIBAVIRIN. [Concomitant]
     Active Substance: RIBAVIRIN
  10. TAMSULOSIN [Concomitant]
     Active Substance: TAMSULOSIN
  11. WARFARIN [Concomitant]
     Active Substance: WARFARIN
  12. ALLOPURINOL. [Concomitant]
     Active Substance: ALLOPURINOL
  13. DIGOXIN. [Concomitant]
     Active Substance: DIGOXIN
  14. TRAMADOL. [Concomitant]
     Active Substance: TRAMADOL
  15. SOFOSBUVIR 400 MG GILEAD [Suspect]
     Active Substance: SOFOSBUVIR
     Indication: CHRONIC HEPATITIS C
     Route: 048
     Dates: start: 20140417, end: 20140709
  16. DILTIAZEM XR [Concomitant]
     Active Substance: DILTIAZEM

REACTIONS (4)
  - Rhabdomyolysis [None]
  - Chronic obstructive pulmonary disease [None]
  - Bursitis [None]
  - Cellulitis [None]

NARRATIVE: CASE EVENT DATE: 20140808
